FAERS Safety Report 11289020 (Version 1)
Quarter: 2015Q3

REPORT INFORMATION
  Report Type: Spontaneous
  Country: US (occurrence: US)
  Receive Date: 20150721
  Receipt Date: 20150721
  Transmission Date: 20151125
  Serious: No
  Sender: FDA-Public Use
  Company Number: US-UNITED THERAPEUTICS-UNT-2015-000409

PATIENT
  Age: 53 Year
  Sex: Female
  Weight: 82.99 kg

DRUGS (2)
  1. REMODULIN [Suspect]
     Active Substance: TREPROSTINIL
     Indication: PULMONARY HYPERTENSION
     Dosage: 0.102 ?G/KG/MIN, CONTINUING
     Route: 058
     Dates: start: 20111229
  2. ADCIRCA [Concomitant]
     Active Substance: TADALAFIL
     Indication: PRODUCT USED FOR UNKNOWN INDICATION

REACTIONS (11)
  - Malaise [Unknown]
  - Dyspnoea [Unknown]
  - Nausea [Unknown]
  - Dry mouth [Unknown]
  - Salivary hypersecretion [Unknown]
  - Dehydration [Unknown]
  - Feeling cold [Unknown]
  - Hot flush [Unknown]
  - Headache [Unknown]
  - Vomiting [Unknown]
  - Infusion site pain [Unknown]

NARRATIVE: CASE EVENT DATE: 20150112
